FAERS Safety Report 7167036-1 (Version None)
Quarter: 2010Q4

REPORT INFORMATION
  Report Type: 
  Country: None (occurrence: None)
  Receive Date: 20101216
  Receipt Date: 20101213
  Transmission Date: 20110411
  Serious: Yes (Other)
  Sender: FDA-Public Use
  Company Number: B0687657A

PATIENT
  Sex: Female
  Weight: 58 kg

DRUGS (4)
  1. TYKERB [Suspect]
     Dosage: 1250MG PER DAY
     Route: 048
     Dates: start: 20100121
  2. XELODA [Suspect]
     Dosage: 3600MG PER DAY
     Route: 048
     Dates: start: 20100121, end: 20100216
  3. XELODA [Suspect]
     Dosage: 3000MG PER DAY
     Route: 048
     Dates: start: 20100217
  4. LOPEMIN [Concomitant]
     Route: 048
     Dates: start: 20100121

REACTIONS (2)
  - BLOOD BILIRUBIN INCREASED [None]
  - PALMAR-PLANTAR ERYTHRODYSAESTHESIA SYNDROME [None]
